FAERS Safety Report 23667189 (Version 2)
Quarter: 2024Q2

REPORT INFORMATION
  Report Type: Spontaneous
  Country: BR (occurrence: None)
  Receive Date: 20240325
  Receipt Date: 20240429
  Transmission Date: 20240715
  Serious: Yes (Other)
  Sender: FDA-Public Use
  Company Number: 2024A068789

PATIENT
  Age: 22322 Day
  Sex: Female
  Weight: 73 kg

DRUGS (1)
  1. LYNPARZA [Suspect]
     Active Substance: OLAPARIB
     Indication: Ovarian cancer
     Dosage: TWO TABLETS
     Route: 048
     Dates: start: 202307, end: 20240301

REACTIONS (6)
  - Malignant neoplasm progression [Unknown]
  - Full blood count abnormal [Unknown]
  - Haematocrit abnormal [Unknown]
  - Hypovitaminosis [Unknown]
  - Fatigue [Unknown]
  - Drug ineffective [Unknown]

NARRATIVE: CASE EVENT DATE: 20240301
